FAERS Safety Report 5379094-5 (Version None)
Quarter: 2007Q3

REPORT INFORMATION
  Report Type: 
  Country: None (occurrence: None)
  Receive Date: 20070705
  Receipt Date: 20070621
  Transmission Date: 20080115
  Serious: Yes (Other)
  Sender: FDA-Public Use
  Company Number: GB-ELI_LILLY_AND_COMPANY-GB200703003990

PATIENT
  Age: 12 Year
  Sex: Male
  Weight: 44 kg

DRUGS (2)
  1. STRATTERA [Suspect]
     Indication: ATTENTION DEFICIT/HYPERACTIVITY DISORDER
     Dosage: 60 MG, DAILY (1/D)
     Route: 048
     Dates: start: 20060801, end: 20070201
  2. MELATONIN [Concomitant]
     Dosage: 6 MG, EACH EVENING

REACTIONS (4)
  - AGGRESSION [None]
  - DEPRESSED MOOD [None]
  - SELF INJURIOUS BEHAVIOUR [None]
  - SUICIDAL IDEATION [None]
